FAERS Safety Report 20776903 (Version 1)
Quarter: 2022Q2

REPORT INFORMATION
  Report Type: Spontaneous
  Country: US (occurrence: US)
  Receive Date: 20220502
  Receipt Date: 20220502
  Transmission Date: 20220720
  Serious: Yes (Other)
  Sender: FDA-Public Use
  Company Number: US-GILEAD-2022-0579795

PATIENT
  Age: 75 Year
  Sex: Male

DRUGS (1)
  1. YESCARTA [Suspect]
     Active Substance: AXICABTAGENE CILOLEUCEL
     Indication: Follicular lymphoma
     Route: 065

REACTIONS (5)
  - Transient ischaemic attack [Unknown]
  - Memory impairment [Unknown]
  - Feeling abnormal [Unknown]
  - Gait inability [Unknown]
  - Infusion site pain [Unknown]
